FAERS Safety Report 5072981-7 (Version None)
Quarter: 2006Q3

REPORT INFORMATION
  Report Type: 
  Country: None (occurrence: None)
  Receive Date: 20060802
  Receipt Date: 20060621
  Transmission Date: 20061208
  Serious: Yes (Hospitalization)
  Sender: FDA-Public Use
  Company Number: 2006082870

PATIENT
  Age: 76 Year
  Sex: Female

DRUGS (15)
  1. DIASTASOL (MIGLITOL) [Suspect]
     Dosage: 100 MG (50 MG, 2 IN 1 D), ORAL
     Route: 048
     Dates: start: 19960101, end: 20060208
  2. FENOFIBRATE [Suspect]
     Dosage: 160 MG, ORAL
     Route: 048
     Dates: start: 20010101, end: 20060208
  3. MYCOSTATIN [Suspect]
     Indication: MUCORMYCOSIS
     Dates: start: 20060124, end: 20060127
  4. VAGOSTABYL (CALCIUM LACTATE, CRATAEGUS, MAGNESIUM THIOSULFATE, MELISSA [Concomitant]
     Dates: start: 20010101, end: 20060208
  5. PIOGLITAZONE HCL [Suspect]
     Dosage: 15 MG, ORAL
     Route: 048
     Dates: start: 20030801, end: 20060210
  6. DAFLON (DIOSMIN) [Suspect]
     Dosage: 500 MG, ORAL
     Route: 048
     Dates: start: 20040801, end: 20060208
  7. METFORMIN (METFORMIN) [Concomitant]
  8. KERLONE [Concomitant]
  9. NICARDIPINE HYDROCHLORIDE [Concomitant]
  10. IXEL (MILNACIPRAN) [Concomitant]
  11. ACETAMINOPHEN [Concomitant]
  12. SPIRONOLACTONE [Concomitant]
  13. ASPIRIN [Concomitant]
  14. BRONCHOKOD (CARBOCISTEINE) [Concomitant]
  15. XANAX [Concomitant]

REACTIONS (4)
  - DERMATITIS EXFOLIATIVE [None]
  - HYPERSENSITIVITY [None]
  - PRURIGO [None]
  - SKIN EXFOLIATION [None]
